FAERS Safety Report 4802753-7 (Version None)
Quarter: 2005Q4

REPORT INFORMATION
  Report Type: 
  Country: None (occurrence: None)
  Receive Date: 20051017
  Receipt Date: 20051017
  Transmission Date: 20060501
  Serious: Yes (Hospitalization)
  Sender: FDA-Public Use
  Company Number: None

PATIENT
  Age: 69 Year
  Sex: Male

DRUGS (12)
  1. INTEGRILIN [Suspect]
     Dosage: 180MCG/KG BOLUS X 2 MCG/KG/M IN INFUS
     Dates: start: 20050721, end: 20050722
  2. HEPARIN [Suspect]
     Dosage: IV
     Route: 042
     Dates: start: 20050721, end: 20051022
  3. ACETAMINOPHEN [Concomitant]
  4. ATENOLOL [Concomitant]
  5. CEFAZOLIN [Concomitant]
  6. GEMFIBROZIL [Concomitant]
  7. MAGNESIUM HYDROXIDE SUSP [Concomitant]
  8. NITROGLYCERIN [Concomitant]
  9. RAMIPRIL [Concomitant]
  10. ISOSORBIDE MONONITRATE [Concomitant]
  11. OMEPRAZOLE [Concomitant]
  12. SIMVASTATIN [Concomitant]

REACTIONS (1)
  - THROMBOCYTOPENIA [None]
